FAERS Safety Report 19430746 (Version 2)
Quarter: 2021Q3

REPORT INFORMATION
  Report Type: Spontaneous
  Country: NL (occurrence: NL)
  Receive Date: 20210617
  Receipt Date: 20210702
  Transmission Date: 20211014
  Serious: Yes (Other)
  Sender: FDA-Public Use
  Company Number: NL-ORGANON-O2106NLD001531

PATIENT
  Sex: Male

DRUGS (2)
  1. MOMETASONE FUROATE. [Suspect]
     Active Substance: MOMETASONE FUROATE
     Dosage: UNK
     Dates: start: 2021
  2. NASONEX [Suspect]
     Active Substance: MOMETASONE FUROATE
     Indication: SEASONAL ALLERGY
     Dosage: UNK

REACTIONS (5)
  - Nasal crusting [Unknown]
  - Nasal congestion [Unknown]
  - Brain neoplasm [Unknown]
  - Drug ineffective [Unknown]
  - Throat tightness [Unknown]

NARRATIVE: CASE EVENT DATE: 2021
